FAERS Safety Report 7819173-3 (Version None)
Quarter: 2011Q4

REPORT INFORMATION
  Report Type: 
  Country: None (occurrence: None)
  Receive Date: 20111018
  Receipt Date: 20111003
  Transmission Date: 20120403
  Serious: Yes (Hospitalization, Other)
  Sender: FDA-Public Use
  Company Number: JP-SANOFI-AVENTIS-2010SA067088

PATIENT
  Age: 79 Year
  Sex: Male

DRUGS (11)
  1. OXALIPLATIN [Suspect]
     Route: 041
  2. LEVOLEUCOVORIN CALCIUM [Concomitant]
     Route: 041
  3. FLUOROURACIL [Concomitant]
     Route: 041
     Dates: start: 20090101, end: 20090101
  4. FLUOROURACIL [Concomitant]
     Route: 041
  5. FLUOROURACIL [Concomitant]
     Route: 040
     Dates: start: 20090101, end: 20090101
  6. LEVOLEUCOVORIN CALCIUM [Concomitant]
     Indication: COLON CANCER
     Route: 041
     Dates: start: 20081201
  7. FLUOROURACIL [Concomitant]
     Dosage: AS PART OF FOLFIRI REGIMEN
  8. PREDNISOLONE [Concomitant]
     Route: 048
  9. OXALIPLATIN [Suspect]
     Indication: COLON CANCER
     Dosage: 1-11 CYCLES
     Route: 041
     Dates: start: 20081201
  10. LEVOLEUCOVORIN CALCIUM [Concomitant]
     Dosage: AS PART OF FOLFIRI REGIMEN
  11. FLUOROURACIL [Concomitant]
     Indication: COLON CANCER
     Route: 040
     Dates: start: 20081201

REACTIONS (7)
  - LUNG DISORDER [None]
  - ERYTHEMA [None]
  - DYSPNOEA [None]
  - PYREXIA [None]
  - RESPIRATORY FAILURE [None]
  - TRAUMATIC LUNG INJURY [None]
  - DRUG HYPERSENSITIVITY [None]
